FAERS Safety Report 4863972-7 (Version None)
Quarter: 2005Q4

REPORT INFORMATION
  Report Type: 
  Country: None (occurrence: None)
  Receive Date: 20051222
  Receipt Date: 20051214
  Transmission Date: 20060501
  Serious: Yes (Hospitalization)
  Sender: FDA-Public Use
  Company Number: BR-JNJFOC-20051204424

PATIENT
  Age: 28 Year
  Sex: Female

DRUGS (2)
  1. TYLEX [Suspect]
     Route: 048
  2. AMITRIPTYLINE [Suspect]
     Dosage: 15 TABLETS
     Route: 048

REACTIONS (3)
  - INTENTIONAL OVERDOSE [None]
  - LOSS OF CONSCIOUSNESS [None]
  - SUICIDE ATTEMPT [None]
